FAERS Safety Report 21420886 (Version 1)
Quarter: 2022Q4

REPORT INFORMATION
  Report Type: Report from Study
  Country: EG (occurrence: EG)
  Receive Date: 20221007
  Receipt Date: 20221007
  Transmission Date: 20230112
  Serious: Yes (Hospitalization)
  Sender: FDA-Public Use
  Company Number: EG-NOVARTISPH-NVSC2022EG118236

PATIENT
  Age: 75 Year
  Sex: Female

DRUGS (14)
  1. FULVESTRANT [Suspect]
     Active Substance: FULVESTRANT
     Indication: Breast cancer
     Dosage: 250 MG, QMO
     Route: 030
     Dates: start: 20220328
  2. FULVESTRANT [Suspect]
     Active Substance: FULVESTRANT
     Dosage: 500 MG, QMO
     Route: 065
     Dates: end: 20220831
  3. CYMBATEX [Concomitant]
     Indication: Pain in extremity
     Dosage: 60 MG, QD ( (5 TO 6 YEARS AGO)
     Route: 048
  4. METFORMIN HYDROCHLORIDE\VILDAGLIPTIN [Concomitant]
     Active Substance: METFORMIN HYDROCHLORIDE\VILDAGLIPTIN
     Indication: Diabetes mellitus
     Dosage: UNK, QD (12 YEARS AGO)
     Route: 048
  5. BENFOTIAMINE\CYANOCOBALAMIN\PYRIDOXINE HYDROCHLORIDE [Concomitant]
     Active Substance: BENFOTIAMINE\CYANOCOBALAMIN\PYRIDOXINE HYDROCHLORIDE
     Indication: Pain in extremity
     Dosage: UNK, BID (2 YEARS) (ADVANCE)
     Route: 048
  6. CHONDROITIN SULFATE (BOVINE)\DIMETHYL SULFONE\GLUCOSAMINE SULFATE [Concomitant]
     Active Substance: CHONDROITIN SULFATE (BOVINE)\DIMETHYL SULFONE\GLUCOSAMINE SULFATE
     Indication: Pain in extremity
     Dosage: UNK, BID (2 YEARS AGO)
     Route: 048
  7. OSSOFORTIN [Concomitant]
     Indication: Sciatica
     Dosage: UNK, QD (5 YEAR AGO)
     Route: 048
  8. ASPIRIN [Concomitant]
     Active Substance: ASPIRIN
     Indication: Thrombosis
     Dosage: 100 MG, QD (2 YEARS AGO)
     Route: 048
  9. ASPIRIN [Concomitant]
     Active Substance: ASPIRIN
     Indication: Chest pain
  10. CAL-MAG [Concomitant]
     Indication: Nutritional supplementation
     Dosage: UNK, QD (6 YEARS AGO)
     Route: 048
  11. AMARYL [Concomitant]
     Active Substance: GLIMEPIRIDE
     Indication: Diabetes mellitus
     Dosage: 2 MG, QD (12 YEARS AGO)
     Route: 048
  12. FENOFIBRATE [Concomitant]
     Active Substance: FENOFIBRATE
     Indication: Blood cholesterol increased
     Dosage: 160 MG (5 TO 6 YEARS AGO)
     Route: 048
  13. ERASTAPEX [Concomitant]
     Indication: Hypertension
     Dosage: 20 MG, QD (12 YEARS AGO)
     Route: 048
  14. ERASTAPEX [Concomitant]
     Dosage: 12.5 MG, QD (12 YEARS AGO)
     Route: 048

REACTIONS (3)
  - Hypoglycaemic coma [Recovered/Resolved]
  - Headache [Recovered/Resolved]
  - Product dose omission issue [Not Recovered/Not Resolved]

NARRATIVE: CASE EVENT DATE: 20220328
